FAERS Safety Report 7251464-X (Version None)
Quarter: 2011Q1

REPORT INFORMATION
  Report Type: 
  Country: None (occurrence: None)
  Receive Date: 20110128
  Receipt Date: 20110117
  Transmission Date: 20110831
  Serious: Yes (Other)
  Sender: FDA-Public Use
  Company Number: PHHY2010DE86791

PATIENT
  Sex: Female

DRUGS (1)
  1. GLEEVEC [Suspect]
     Indication: CHRONIC MYELOID LEUKAEMIA
     Dosage: 400 MG DAILY
     Route: 048
     Dates: start: 20021101

REACTIONS (9)
  - HYPOTHALAMO-PITUITARY DISORDER [None]
  - EYE INFLAMMATION [None]
  - EYELID OEDEMA [None]
  - CONJUNCTIVAL NEOPLASM [None]
  - EXOPHTHALMOS [None]
  - LYMPHOCYTIC INFILTRATION [None]
  - CONJUNCTIVITIS [None]
  - CEREBRAL HYPOPERFUSION [None]
  - DEMYELINATION [None]
